FAERS Safety Report 6939722-7 (Version None)
Quarter: 2010Q3

REPORT INFORMATION
  Report Type: 
  Country: None (occurrence: None)
  Receive Date: 20100825
  Receipt Date: 20100816
  Transmission Date: 20110219
  Serious: No
  Sender: FDA-Public Use
  Company Number: US-BIOGENIDEC-2010BI028425

PATIENT
  Age: 48 Year
  Sex: Female

DRUGS (3)
  1. TYSABRI [Suspect]
     Indication: MULTIPLE SCLEROSIS
     Route: 042
     Dates: start: 20070326, end: 20070809
  2. TYSABRI [Suspect]
     Route: 042
     Dates: start: 20081216
  3. AVONEX [Concomitant]
     Indication: MULTIPLE SCLEROSIS
     Route: 030
     Dates: start: 20010126

REACTIONS (3)
  - MULTIPLE SCLEROSIS RELAPSE [None]
  - TEMPERATURE INTOLERANCE [None]
  - VERTIGO [None]
